FAERS Safety Report 16695286 (Version 2)
Quarter: 2019Q3

REPORT INFORMATION
  Report Type: Spontaneous
  Country: US (occurrence: US)
  Receive Date: 20190813
  Receipt Date: 20190816
  Transmission Date: 20191004
  Serious: Yes (Other)
  Sender: FDA-Public Use
  Company Number: US-DRREDDYS-USA/USA/19/0113070

PATIENT
  Age: 35 Month
  Sex: Male

DRUGS (4)
  1. TOPOTECAN HYDROCHLORIDE FOR INJECTION [Suspect]
     Active Substance: TOPOTECAN HYDROCHLORIDE
  2. TOPOTECAN HYDROCHLORIDE FOR INJECTION [Suspect]
     Active Substance: TOPOTECAN HYDROCHLORIDE
     Indication: RETINOBLASTOMA
  3. MELPHALAN HYDROCHLORIDE FOR INJECTION [Suspect]
     Active Substance: MELPHALAN HYDROCHLORIDE
  4. MELPHALAN HYDROCHLORIDE FOR INJECTION [Suspect]
     Active Substance: MELPHALAN HYDROCHLORIDE
     Indication: RETINOBLASTOMA

REACTIONS (3)
  - Anaphylactic reaction [Unknown]
  - Drug ineffective [Recovered/Resolved]
  - Retinal detachment [Recovered/Resolved]
